FAERS Safety Report 5008473-0 (Version None)
Quarter: 2006Q2

REPORT INFORMATION
  Report Type: 
  Country: None (occurrence: None)
  Receive Date: 20060522
  Receipt Date: 20060522
  Transmission Date: 20061013
  Serious: Yes (Other)
  Sender: FDA-Public Use
  Company Number: None

PATIENT
  Sex: Male
  Weight: 102.0593 kg

DRUGS (2)
  1. EFFEXOR [Suspect]
     Indication: ANXIETY
     Dosage: 75MG    DAILY   PO
     Route: 048
  2. EFFEXOR [Suspect]
     Indication: STRESS
     Dosage: 75MG    DAILY   PO
     Route: 048

REACTIONS (20)
  - ALOPECIA [None]
  - AMNESIA [None]
  - CONFUSIONAL STATE [None]
  - CRYING [None]
  - DISTURBANCE IN ATTENTION [None]
  - DIZZINESS [None]
  - DRUG WITHDRAWAL SYNDROME [None]
  - EPISTAXIS [None]
  - FLAT AFFECT [None]
  - INFLUENZA LIKE ILLNESS [None]
  - IRRITABILITY [None]
  - LIBIDO DECREASED [None]
  - MIGRAINE [None]
  - MOOD SWINGS [None]
  - NIGHTMARE [None]
  - PARANOIA [None]
  - PERSONALITY CHANGE [None]
  - PERSONALITY DISORDER [None]
  - VISUAL DISTURBANCE [None]
  - WEIGHT INCREASED [None]
